FAERS Safety Report 15203268 (Version 1)
Quarter: 2018Q3

REPORT INFORMATION
  Report Type: Spontaneous
  Country: US (occurrence: US)
  Receive Date: 20180726
  Receipt Date: 20180726
  Transmission Date: 20181010
  Serious: No
  Sender: FDA-Public Use
  Company Number: US-BEH-2018093066

PATIENT
  Age: 64 Year
  Sex: Female

DRUGS (1)
  1. HIZENTRA [Suspect]
     Active Substance: HUMAN IMMUNOGLOBULIN G
     Indication: HYPOGAMMAGLOBULINAEMIA
     Dosage: 15 G, QOW
     Route: 058
     Dates: start: 20180402

REACTIONS (4)
  - Dyspnoea [Unknown]
  - Nervousness [Unknown]
  - Chronic obstructive pulmonary disease [Unknown]
  - Anxiety [Unknown]

NARRATIVE: CASE EVENT DATE: 20180722
